FAERS Safety Report 13291660 (Version 1)
Quarter: 2017Q1

REPORT INFORMATION
  Report Type: Spontaneous
  Country: US (occurrence: US)
  Receive Date: 20170303
  Receipt Date: 20170303
  Transmission Date: 20170428
  Serious: No
  Sender: FDA-Public Use
  Company Number: US-009507513-1702USA004729

PATIENT
  Age: 62 Year
  Sex: Male

DRUGS (12)
  1. POSACONAZOLE [Suspect]
     Active Substance: POSACONAZOLE
     Indication: MUCORMYCOSIS
  2. COLCHICINE. [Concomitant]
     Active Substance: COLCHICINE
     Dosage: 0.6 MG, QD
  3. ERTAPENEM SODIUM [Suspect]
     Active Substance: ERTAPENEM SODIUM
     Indication: ARTHRITIS BACTERIAL
     Dosage: 1 G, DAILY
  4. VANCOMYCIN [Concomitant]
     Active Substance: VANCOMYCIN
     Dosage: 1 G, DAILY
  5. DOXYCYCLINE. [Concomitant]
     Active Substance: DOXYCYCLINE
     Dosage: 100 MG, TWICE A DAY
  6. PREDNISONE. [Concomitant]
     Active Substance: PREDNISONE
     Dosage: TAPER 40 MG, DAILY FOR 5 DAYS
  7. PREDNISONE. [Concomitant]
     Active Substance: PREDNISONE
     Dosage: 10 MG DAILY FOR 4 DAYS
  8. POSACONAZOLE [Suspect]
     Active Substance: POSACONAZOLE
     Indication: ARTHRITIS FUNGAL
     Dosage: 400 MG, TWICE A DAY
     Route: 048
  9. CLINDAMYCIN. [Concomitant]
     Active Substance: CLINDAMYCIN
     Dosage: 600 MG, Q8H
  10. CIPROFLOXACIN. [Concomitant]
     Active Substance: CIPROFLOXACIN
     Dosage: 500 MG, TWICE A DAY
     Route: 048
  11. PIPERACILLIN AND TAZOBACTAM [Concomitant]
     Active Substance: PIPERACILLIN SODIUM\TAZOBACTAM SODIUM
     Dosage: 3.375 G EVERY 6 H
  12. PREDNISONE. [Concomitant]
     Active Substance: PREDNISONE
     Dosage: 20 MG DAILY FOR 5 DAYS

REACTIONS (1)
  - Product use issue [Unknown]
